FAERS Safety Report 20895478 (Version 1)
Quarter: 2022Q2

REPORT INFORMATION
  Report Type: Spontaneous
  Country: US (occurrence: None)
  Receive Date: 20220528
  Receipt Date: 20220528
  Transmission Date: 20220720
  Serious: No
  Sender: FDA-Public Use
  Company Number: None

PATIENT
  Age: 55 Year
  Sex: Male
  Weight: 74.25 kg

DRUGS (1)
  1. DEGREE MOTIONSENSE ULTRACLEAR BLACK AND WHITE INVISIBLE SOLID 48H ANTI [Suspect]
     Active Substance: ALUMINUM ZIRCONIUM TETRACHLOROHYDREX GLY
     Indication: Personal hygiene
     Dosage: OTHER QUANTITY : 3.8 OUNCE(S);?FREQUENCY : DAILY;?
     Route: 061
     Dates: start: 20220401, end: 20220527

REACTIONS (2)
  - Application site rash [None]
  - Product quality issue [None]

NARRATIVE: CASE EVENT DATE: 20220502
